FAERS Safety Report 13145404 (Version 22)
Quarter: 2024Q2

REPORT INFORMATION
  Report Type: Spontaneous
  Country: US (occurrence: US)
  Receive Date: 20170124
  Receipt Date: 20240523
  Transmission Date: 20240716
  Serious: No
  Sender: FDA-Public Use
  Company Number: US-PFIZER INC-2017029857

PATIENT
  Age: 64 Year
  Sex: Female

DRUGS (3)
  1. XELJANZ XR [Suspect]
     Active Substance: TOFACITINIB CITRATE
     Indication: Rheumatoid arthritis
     Dosage: 11 MG
     Dates: end: 2017
  2. XELJANZ XR [Suspect]
     Active Substance: TOFACITINIB CITRATE
     Dosage: 11 MG
  3. XELJANZ XR [Suspect]
     Active Substance: TOFACITINIB CITRATE
     Dosage: 11 MG, 1X/DAY

REACTIONS (21)
  - Asthma [Not Recovered/Not Resolved]
  - Fatigue [Unknown]
  - Malaise [Unknown]
  - Nasopharyngitis [Unknown]
  - Fall [Unknown]
  - Nasal congestion [Unknown]
  - Sleep apnoea syndrome [Unknown]
  - Thyroid cyst [Unknown]
  - Insomnia [Unknown]
  - Pain [Unknown]
  - Nausea [Unknown]
  - Decreased appetite [Unknown]
  - Fibromyalgia [Unknown]
  - Osteoarthritis [Unknown]
  - Ear congestion [Unknown]
  - Hypoacusis [Unknown]
  - Pain in extremity [Unknown]
  - Gait disturbance [Unknown]
  - Feeling abnormal [Unknown]
  - Illness [Unknown]
  - Cognitive disorder [Unknown]
